FAERS Safety Report 4439876-0 (Version None)
Quarter: 2004Q3

REPORT INFORMATION
  Report Type: 
  Country: None (occurrence: None)
  Receive Date: 20040902
  Receipt Date: 20040827
  Transmission Date: 20050211
  Serious: Yes (Hospitalization, Other)
  Sender: FDA-Public Use
  Company Number: US-BRISTOL-MYERS SQUIBB COMPANY-12685491

PATIENT
  Age: 84 Year
  Sex: Female
  Weight: 47 kg

DRUGS (3)
  1. COUMADIN [Suspect]
     Indication: ANGINA PECTORIS
     Dosage: 2YO INTERPT+RE-STARTED,INCR.DURING HOSP 8/19, 8/23=10MG, 8/24 =5MG,8/25=NONE,8/26=10MG,8/27=10MG
     Route: 048
  2. NASACORT [Concomitant]
     Dosage: USED FOR AWHILE, HAS NOT USED THEM IN THE LAST 6 MONTHS
     Route: 045
  3. NASONEX [Concomitant]
     Dosage: USED FOR AWHILE, BUT HAS NOT USED THEM IN THE LAST 6 MONTHS
     Route: 045

REACTIONS (5)
  - ANOREXIA [None]
  - ASTHENIA [None]
  - CARDIAC VALVE DISEASE [None]
  - DIZZINESS [None]
  - INTERNATIONAL NORMALISED RATIO ABNORMAL [None]
